FAERS Safety Report 5868779-X (Version None)
Quarter: 2008Q3

REPORT INFORMATION
  Report Type: 
  Country: None (occurrence: None)
  Receive Date: 20080902
  Receipt Date: 20080902
  Transmission Date: 20090109
  Serious: No
  Sender: FDA-Public Use
  Company Number: None

PATIENT
  Sex: Female

DRUGS (2)
  1. AMOXICILLIN [Suspect]
     Indication: EAR INFECTION
  2. CEFTIN [Suspect]
     Indication: PYREXIA

REACTIONS (1)
  - TOOTH DECALCIFICATION [None]
